FAERS Safety Report 7727450-X (Version None)
Quarter: 2011Q3

REPORT INFORMATION
  Report Type: 
  Country: None (occurrence: None)
  Receive Date: 20110902
  Receipt Date: 20110823
  Transmission Date: 20111222
  Serious: Yes (Other)
  Sender: FDA-Public Use
  Company Number: JP-GENENTECH-323672

PATIENT
  Age: 77 Year
  Sex: Male

DRUGS (7)
  1. IOPAMIDOL [Suspect]
     Indication: PRODUCT USED FOR UNKNOWN INDICATION
  2. PLAVIX [Concomitant]
     Indication: PRODUCT USED FOR UNKNOWN INDICATION
     Dosage: UNK
     Route: 048
     Dates: start: 20110511
  3. RADICUT [Suspect]
     Indication: THROMBOTIC CEREBRAL INFARCTION
     Dosage: UNK
     Dates: start: 20110510, end: 20110511
  4. OZAGREL SODIUM [Concomitant]
     Indication: PRODUCT USED FOR UNKNOWN INDICATION
     Dosage: UNK
     Dates: start: 20110511, end: 20110518
  5. ASPIRIN [Concomitant]
     Indication: PRODUCT USED FOR UNKNOWN INDICATION
     Dosage: UNK
     Dates: start: 20110511
  6. VASODILATOR [Concomitant]
     Indication: PRODUCT USED FOR UNKNOWN INDICATION
  7. ACTIVASE [Suspect]
     Indication: THROMBOTIC CEREBRAL INFARCTION
     Dosage: 24 MIU, QD
     Route: 042
     Dates: start: 20110510, end: 20110510

REACTIONS (1)
  - RENAL IMPAIRMENT [None]
